FAERS Safety Report 20987762 (Version 1)
Quarter: 2022Q2

REPORT INFORMATION
  Report Type: Spontaneous
  Country: US (occurrence: US)
  Receive Date: 20220621
  Receipt Date: 20220621
  Transmission Date: 20220721
  Serious: No
  Sender: FDA-Public Use
  Company Number: US-PFIZER INC-PV202200005716

PATIENT
  Age: 60 Year
  Sex: Female

DRUGS (1)
  1. IBRANCE [Suspect]
     Active Substance: PALBOCICLIB
     Indication: Colon cancer
     Dosage: UNK
     Dates: start: 20211105

REACTIONS (4)
  - Stomatitis [Unknown]
  - Stress [Unknown]
  - Pain [Unknown]
  - Red blood cell count decreased [Unknown]
